FAERS Safety Report 16766285 (Version 3)
Quarter: 2019Q3

REPORT INFORMATION
  Report Type: Spontaneous
  Country: US (occurrence: US)
  Receive Date: 20190903
  Receipt Date: 20190913
  Transmission Date: 20191005
  Serious: Yes (Other)
  Sender: FDA-Public Use
  Company Number: US-BAYER-2019-158530

PATIENT
  Sex: Male

DRUGS (3)
  1. KOGENATE FS [Suspect]
     Active Substance: ANTIHEMOPHILIC FACTOR, HUMAN RECOMBINANT
     Indication: HAEMOPHILIA
     Dosage: 3 DF, ONCE (PRIOR SURGERY, WITH RECALL LOT)
     Dates: start: 2019, end: 2019
  2. KOGENATE FS [Suspect]
     Active Substance: ANTIHEMOPHILIC FACTOR, HUMAN RECOMBINANT
     Indication: HAEMOPHILIA
     Dosage: UNK
  3. KOGENATE FS [Suspect]
     Active Substance: ANTIHEMOPHILIC FACTOR, HUMAN RECOMBINANT
     Indication: HAEMOPHILIA
     Dosage: 3 DF, ONCE (PRIOR SURGERY, WITH RECALL LOT)
     Dates: start: 2019, end: 2019

REACTIONS (3)
  - Recalled product [None]
  - Recalled product administered [None]
  - Surgery [None]

NARRATIVE: CASE EVENT DATE: 2019
